FAERS Safety Report 5227704-5 (Version None)
Quarter: 2007Q1

REPORT INFORMATION
  Report Type: 
  Country: None (occurrence: None)
  Receive Date: 20070202
  Receipt Date: 20070122
  Transmission Date: 20070707
  Serious: Yes (Hospitalization)
  Sender: FDA-Public Use
  Company Number: GB-PFIZER INC-2006056271

PATIENT
  Sex: Female
  Weight: 73.1 kg

DRUGS (3)
  1. SU-011,248 [Suspect]
     Indication: RENAL CELL CARCINOMA STAGE UNSPECIFIED
     Route: 048
     Dates: start: 20060310, end: 20060407
  2. SU-011,248 [Suspect]
     Route: 048
     Dates: start: 20060421, end: 20060519
  3. SU-011,248 [Suspect]
     Route: 048

REACTIONS (1)
  - SYNCOPE [None]
